FAERS Safety Report 6677085-5 (Version None)
Quarter: 2010Q2

REPORT INFORMATION
  Report Type: 
  Country: None (occurrence: None)
  Receive Date: 20100412
  Receipt Date: 20100406
  Transmission Date: 20101027
  Serious: Yes (Disabling, Other)
  Sender: FDA-Public Use
  Company Number: BR-BAYER-200913896LA

PATIENT
  Age: 59 Year
  Sex: Female

DRUGS (4)
  1. BETAFERON [Suspect]
     Indication: SECONDARY PROGRESSIVE MULTIPLE SCLEROSIS
     Route: 058
     Dates: start: 20090319
  2. BETAFERON [Suspect]
     Dosage: BETAJECT
     Route: 058
  3. MAXAPRAN [Concomitant]
     Indication: DEPRESSION
     Dosage: IN THE MORNING
     Route: 048
     Dates: start: 20090101
  4. CELEBRA [Concomitant]
     Indication: PREMEDICATION
     Route: 048
     Dates: start: 20090701

REACTIONS (16)
  - ASTHENIA [None]
  - CHILLS [None]
  - COORDINATION ABNORMAL [None]
  - FALL [None]
  - FATIGUE [None]
  - FEELING HOT [None]
  - HEAD DISCOMFORT [None]
  - HYPERHIDROSIS [None]
  - INSOMNIA [None]
  - MALAISE [None]
  - MULTIPLE SCLEROSIS [None]
  - MUSCULOSKELETAL CHEST PAIN [None]
  - SENSATION OF HEAVINESS [None]
  - SKELETAL INJURY [None]
  - SOMNOLENCE [None]
  - UPPER LIMB FRACTURE [None]
